FAERS Safety Report 22773688 (Version 4)
Quarter: 2023Q4

REPORT INFORMATION
  Report Type: Spontaneous
  Country: US (occurrence: US)
  Receive Date: 20230801
  Receipt Date: 20231121
  Transmission Date: 20240109
  Serious: Yes (Other)
  Sender: FDA-Public Use
  Company Number: US-BAYER-2023A104058

PATIENT
  Age: 36 Year
  Sex: Male

DRUGS (4)
  1. JIVI [Suspect]
     Active Substance: DAMOCTOCOG ALFA PEGOL
     Indication: Prophylaxis
     Dosage: 4200 U (+ / - 10 %), BIW
     Route: 041
  2. JIVI [Suspect]
     Active Substance: DAMOCTOCOG ALFA PEGOL
     Indication: Prophylaxis
     Dosage: 4200 U (+ / - 10 %), PRN FOR BREAKTHROUGH BLEEDS
     Route: 041
  3. JIVI [Suspect]
     Active Substance: DAMOCTOCOG ALFA PEGOL
     Indication: Prophylaxis
     Dosage: 1 DF, ONCE
     Route: 041
     Dates: start: 202307, end: 202307
  4. JIVI [Suspect]
     Active Substance: DAMOCTOCOG ALFA PEGOL
     Indication: Prophylaxis
     Dosage: 5100 IU (+/-10%)

REACTIONS (3)
  - Haemorrhage [Recovered/Resolved]
  - Haemorrhage [None]
  - Product dose omission issue [None]

NARRATIVE: CASE EVENT DATE: 20230712
